FAERS Safety Report 6434072-X (Version None)
Quarter: 2009Q4

REPORT INFORMATION
  Report Type: 
  Country: None (occurrence: None)
  Receive Date: 20091110
  Receipt Date: 20081112
  Transmission Date: 20100525
  Serious: No
  Sender: FDA-Public Use
  Company Number: US-ASTRAZENECA-2009UW16709

PATIENT
  Sex: Female

DRUGS (2)
  1. PRILOSEC OTC [Suspect]
     Dosage: 1 TABLET, 1 /DAY
     Route: 048
     Dates: start: 20061110, end: 20081107
  2. COSAMANDIAS [Concomitant]
     Dosage: UNKNOWN

REACTIONS (3)
  - ADVERSE REACTION [None]
  - PRURITUS GENERALISED [None]
  - RASH PRURITIC [None]
